FAERS Safety Report 15979280 (Version 1)
Quarter: 2019Q1

REPORT INFORMATION
  Report Type: Spontaneous
  Country: US (occurrence: US)
  Receive Date: 20190216
  Receipt Date: 20190216
  Transmission Date: 20190418
  Serious: Yes (Disabling)
  Sender: FDA-Public Use
  Company Number: None

PATIENT
  Age: 16 Year
  Sex: Male
  Weight: 63 kg

DRUGS (1)
  1. CARBAMIDE PEROXIDE [Suspect]
     Active Substance: CARBAMIDE PEROXIDE
     Indication: CERUMEN REMOVAL
     Dosage: ?          QUANTITY:5 DROP(S);?
     Dates: start: 20190213, end: 20190216

REACTIONS (3)
  - Ear pain [None]
  - Ear congestion [None]
  - Headache [None]

NARRATIVE: CASE EVENT DATE: 20190215
